FAERS Safety Report 8615348-4 (Version None)
Quarter: 2012Q3

REPORT INFORMATION
  Report Type: 
  Country: None (occurrence: None)
  Receive Date: 20120823
  Receipt Date: 20120813
  Transmission Date: 20120928
  Serious: Yes (Hospitalization)
  Sender: FDA-Public Use
  Company Number: AU-CELGENEUS-008-CCAZA-12042213

PATIENT
  Sex: Male

DRUGS (3)
  1. AZACITIDINE [Suspect]
     Dosage: 75 MILLIGRAM/SQ. METER
     Route: 058
     Dates: start: 20120326, end: 20120401
  2. AZACITIDINE [Suspect]
     Dosage: 75 MILLIGRAM/SQ. METER
     Route: 058
     Dates: start: 20111010, end: 20111016
  3. ASPIRIN [Concomitant]
     Route: 065

REACTIONS (2)
  - SUBARACHNOID HAEMORRHAGE [None]
  - PLEURAL EFFUSION [None]
